FAERS Safety Report 6943229-0 (Version None)
Quarter: 2010Q3

REPORT INFORMATION
  Report Type: 
  Country: None (occurrence: None)
  Receive Date: 20100826
  Receipt Date: 20100819
  Transmission Date: 20110219
  Serious: Yes (Other)
  Sender: FDA-Public Use
  Company Number: MX-PFIZER INC-2010105206

PATIENT
  Age: 56 Year
  Sex: Female
  Weight: 50 kg

DRUGS (1)
  1. CAMPTOSAR [Suspect]
     Indication: NEOPLASM MALIGNANT
     Dosage: 100 MG, UNK
     Route: 042
     Dates: start: 20100726, end: 20100726

REACTIONS (3)
  - CHEST DISCOMFORT [None]
  - DYSPNOEA [None]
  - MUSCLE SPASMS [None]
